FAERS Safety Report 5569830-7 (Version None)
Quarter: 2007Q4

REPORT INFORMATION
  Report Type: 
  Country: None (occurrence: None)
  Receive Date: 20071220
  Receipt Date: 20070419
  Transmission Date: 20080405
  Serious: No
  Sender: FDA-Public Use
  Company Number: US-ABBOTT-07P-163-0366318-00

PATIENT
  Sex: Female
  Weight: 56.75 kg

DRUGS (1)
  1. OMNICEF [Suspect]
     Indication: BRONCHITIS
     Route: 048
     Dates: start: 20070417

REACTIONS (2)
  - DYSGEUSIA [None]
  - PAROSMIA [None]
